FAERS Safety Report 6733819-2 (Version None)
Quarter: 2010Q2

REPORT INFORMATION
  Report Type: 
  Country: None (occurrence: None)
  Receive Date: 20100520
  Receipt Date: 20100512
  Transmission Date: 20101027
  Serious: Yes (Other)
  Sender: FDA-Public Use
  Company Number: AU-PFIZER INC-2010044195

PATIENT
  Age: 87 Year
  Sex: Female

DRUGS (1)
  1. MACRODANTIN [Suspect]

REACTIONS (3)
  - FEELING ABNORMAL [None]
  - MEMORY IMPAIRMENT [None]
  - OPTIC NERVE INJURY [None]
